FAERS Safety Report 16909085 (Version 5)
Quarter: 2020Q1

REPORT INFORMATION
  Report Type: Report from Study
  Country: US (occurrence: US)
  Receive Date: 20191011
  Receipt Date: 20200116
  Transmission Date: 20200409
  Serious: Yes (Other)
  Sender: FDA-Public Use
  Company Number: US-PFIZER INC-2019317302

PATIENT
  Age: 42 Year
  Sex: Female

DRUGS (6)
  1. LETROZOLE. [Concomitant]
     Active Substance: LETROZOLE
     Indication: BREAST CANCER METASTATIC
     Dosage: 2.5 MG, 1X/DAY
     Route: 048
     Dates: start: 201907
  2. IBRANCE [Suspect]
     Active Substance: PALBOCICLIB
     Dosage: 100 MG, CYCLIC,(IBRANCE 21 DAYS ON, 7 DAYS OFF)
     Route: 048
     Dates: start: 201908, end: 2019
  3. IBRANCE [Suspect]
     Active Substance: PALBOCICLIB
     Dosage: 125 MG, CYCLIC  (21 DAYS ON, 7 DAYS OFF)
     Route: 048
     Dates: start: 201909
  4. IBRANCE [Suspect]
     Active Substance: PALBOCICLIB
     Indication: BREAST CANCER METASTATIC
     Dosage: 125 MG, CYCLIC  (21 DAYS ON, 7 DAYS OFF)
     Route: 048
     Dates: start: 20190503, end: 2019
  5. IBRANCE [Suspect]
     Active Substance: PALBOCICLIB
     Dosage: 125 MG, CYCLIC (21 DAYS ON, 7 DAYS OFF)
     Route: 048
     Dates: start: 20190715, end: 2019
  6. LOPROX [Concomitant]
     Active Substance: CICLOPIROX\CICLOPIROX OLAMINE
     Indication: BREAST CANCER METASTATIC
     Dosage: 7.5 MG, UNK
     Route: 030
     Dates: start: 201906

REACTIONS (30)
  - Fatigue [Recovering/Resolving]
  - Diarrhoea [Recovering/Resolving]
  - Faeces soft [Unknown]
  - Flatulence [Recovered/Resolved]
  - Thrombocytopenia [Recovered/Resolved]
  - Neuropathy peripheral [Not Recovered/Not Resolved]
  - Anaemia [Recovering/Resolving]
  - Pollakiuria [Recovered/Resolved]
  - Headache [Unknown]
  - Dizziness [Recovering/Resolving]
  - Back pain [Recovering/Resolving]
  - Abdominal pain [Recovered/Resolved]
  - Abdominal distension [Recovered/Resolved]
  - Neutropenia [Recovering/Resolving]
  - Diarrhoea haemorrhagic [Recovered/Resolved]
  - Hepatic enzyme increased [Recovered/Resolved]
  - Infection [Unknown]
  - Leukopenia [Not Recovered/Not Resolved]
  - Condition aggravated [Not Recovered/Not Resolved]
  - Caudal regression syndrome [Unknown]
  - Bone marrow failure [Not Recovered/Not Resolved]
  - Nausea [Recovering/Resolving]
  - Dry mouth [Recovering/Resolving]
  - Blood pressure decreased [Recovered/Resolved]
  - Weight decreased [Not Recovered/Not Resolved]
  - Pain in extremity [Recovering/Resolving]
  - Frequent bowel movements [Unknown]
  - Decreased appetite [Not Recovered/Not Resolved]
  - Hot flush [Recovering/Resolving]
  - Paraesthesia [Recovering/Resolving]

NARRATIVE: CASE EVENT DATE: 2019
